FAERS Safety Report 7543602-6 (Version None)
Quarter: 2011Q2

REPORT INFORMATION
  Report Type: 
  Country: None (occurrence: None)
  Receive Date: 20110613
  Receipt Date: 20021231
  Transmission Date: 20111010
  Serious: Yes (Hospitalization)
  Sender: FDA-Public Use
  Company Number: PHFR2002GB04197

PATIENT
  Sex: Female

DRUGS (4)
  1. HYOSCINE [Concomitant]
     Indication: SALIVARY HYPERSECRETION
     Dosage: 300 UG/DAY
     Route: 048
     Dates: start: 20020801, end: 20021201
  2. CLOZAPINE [Suspect]
     Indication: SCHIZOPHRENIA
     Route: 048
     Dates: start: 20020520
  3. MEBEVERINE [Concomitant]
     Dosage: 135MG/DAY
     Route: 048
  4. SENNA-MINT WAF [Concomitant]
     Indication: CONSTIPATION
     Dosage: 15MG/DAY
     Route: 048
     Dates: start: 20020501, end: 20021201

REACTIONS (2)
  - GASTRIC ULCER [None]
  - HAEMATEMESIS [None]
